FAERS Safety Report 5367655-9 (Version None)
Quarter: 2007Q2

REPORT INFORMATION
  Report Type: 
  Country: None (occurrence: None)
  Receive Date: 20070622
  Receipt Date: 20070216
  Transmission Date: 20071010
  Serious: No
  Sender: FDA-Public Use
  Company Number: US-ASTRAZENECA-2007UW03146

PATIENT
  Age: 6 Year
  Sex: Female
  Weight: 20 kg

DRUGS (5)
  1. PULMICORT [Suspect]
     Indication: WHEEZING
     Route: 055
  2. ALBUTEROL [Concomitant]
  3. NUTROPIN [Concomitant]
  4. PREVACID [Concomitant]
  5. MULTIVITAMIN [Concomitant]

REACTIONS (3)
  - COUGH [None]
  - HEART RATE INCREASED [None]
  - TREMOR [None]
